FAERS Safety Report 5214760-3 (Version None)
Quarter: 2006Q4

REPORT INFORMATION
  Report Type: 
  Country: None (occurrence: None)
  Receive Date: 20061113
  Receipt Date: 20060918
  Transmission Date: 20070319
  Serious: Yes (Other)
  Sender: FDA-Public Use
  Company Number: US-JNJFOC-20060802379

PATIENT
  Age: 79 Year
  Sex: Female

DRUGS (1)
  1. LEVAQUIN [Suspect]
     Indication: URINARY TRACT INFECTION
     Dosage: 500 MG, IN 1 DAY, INTRAVENOUS
     Route: 042
     Dates: start: 20060415, end: 20060417

REACTIONS (2)
  - HALLUCINATION [None]
  - VISUAL DISTURBANCE [None]
